FAERS Safety Report 25387298 (Version 2)
Quarter: 2025Q2

REPORT INFORMATION
  Report Type: Report from Study
  Country: BR (occurrence: BR)
  Receive Date: 20250602
  Receipt Date: 20250626
  Transmission Date: 20250717
  Serious: Yes (Hospitalization)
  Sender: MERCK SHARP & DOHME LLC
  Company Number: BR-AstrazenecaRSG-0709-D926QC00001(Prod)000004

PATIENT
  Age: 39 Year
  Sex: Female
  Weight: 93 kg

DRUGS (11)
  1. PEMBROLIZUMAB [Suspect]
     Active Substance: PEMBROLIZUMAB
     Indication: Triple negative breast cancer
     Dates: start: 20250416, end: 20250416
  2. DEXAMETHASONE PHOSPHATE [Concomitant]
     Active Substance: DEXAMETHASONE PHOSPHATE
     Indication: Prophylaxis of nausea and vomiting
     Dates: start: 20250416
  3. DEXAMETHASONE PHOSPHATE [Concomitant]
     Active Substance: DEXAMETHASONE PHOSPHATE
     Indication: Chemotherapy side effect prophylaxis
     Dosage: EVERY WEEK
     Dates: start: 20250416
  4. OMEPRAZOLE SODIUM [Concomitant]
     Active Substance: OMEPRAZOLE SODIUM
     Indication: Prophylaxis of nausea and vomiting
     Dates: start: 20250416
  5. PACLITAXEL [Suspect]
     Active Substance: PACLITAXEL
     Indication: Triple negative breast cancer
     Dates: start: 20250423, end: 20250423
  6. PACLITAXEL [Suspect]
     Active Substance: PACLITAXEL
     Indication: Triple negative breast cancer
     Dates: start: 20250416, end: 20250416
  7. DIPHENHYDRAMINE [AMMONIUM CHLORIDE;DIPHENHYDRAMINE HYDROCHLORIDE;SO... [Concomitant]
     Indication: Chemotherapy side effect prophylaxis
     Dosage: EVERY WEEK
     Dates: start: 20250416
  8. ONDANSETRON [ONDANSETRON HYDROCHLORIDE DIHYDRATE] [Concomitant]
     Indication: Chemotherapy side effect prophylaxis
     Dosage: EVERY WEEK
     Dates: start: 20250416
  9. CARBOPLATIN [Suspect]
     Active Substance: CARBOPLATIN
     Indication: Triple negative breast cancer
     Dates: start: 20250416, end: 20250416
  10. CARBOPLATIN [Suspect]
     Active Substance: CARBOPLATIN
     Indication: Triple negative breast cancer
     Dates: start: 20250423, end: 20250423
  11. CIMETIDINE [CIMETIDINE HYDROCHLORIDE] [Concomitant]
     Indication: Chemotherapy side effect prophylaxis
     Dosage: EVERY WEEK
     Dates: start: 20250416

REACTIONS (1)
  - Hyperthermia malignant [Recovering/Resolving]

NARRATIVE: CASE EVENT DATE: 20250521
